FAERS Safety Report 21530482 (Version 4)
Quarter: 2024Q2

REPORT INFORMATION
  Report Type: Spontaneous
  Country: DK (occurrence: DK)
  Receive Date: 20221031
  Receipt Date: 20240420
  Transmission Date: 20240716
  Serious: Yes (Other)
  Sender: FDA-Public Use
  Company Number: DK-BRISTOL-MYERS SQUIBB COMPANY-2022-128347

PATIENT
  Age: 49 Year
  Sex: Male

DRUGS (2)
  1. NIVOLUMAB [Suspect]
     Active Substance: NIVOLUMAB
     Indication: Malignant melanoma
  2. NIVOLUMAB [Suspect]
     Active Substance: NIVOLUMAB
     Dosage: DOSE : UNAV;     FREQ : UNAV
     Dates: start: 2019

REACTIONS (9)
  - Osteonecrosis [Unknown]
  - Metabolic disorder [Unknown]
  - Thyroid disorder [Unknown]
  - Arthritis [Recovering/Resolving]
  - Bursitis [Recovering/Resolving]
  - Osteoarthritis [Unknown]
  - Resorption bone increased [Unknown]
  - Cartilage injury [Unknown]
  - Vasculitis [Unknown]
